FAERS Safety Report 24284295 (Version 1)
Quarter: 2024Q3

REPORT INFORMATION
  Report Type: Spontaneous
  Country: FR (occurrence: FR)
  Receive Date: 20240905
  Receipt Date: 20240905
  Transmission Date: 20241016
  Serious: Yes (Other)
  Sender: AUROBINDO
  Company Number: FR-AFSSAPS-RE2024000187

PATIENT
  Age: 50 Year
  Sex: Female
  Weight: 62 kg

DRUGS (7)
  1. CARBOPLATIN [Suspect]
     Active Substance: CARBOPLATIN
     Indication: Breast cancer
     Dosage: UNK (UNSPECIFIED)
     Route: 042
     Dates: start: 20231020, end: 20240104
  2. PACLITAXEL [Suspect]
     Active Substance: PACLITAXEL
     Indication: Breast cancer
     Dosage: 1 DOSAGE FORM 1WEEK
     Route: 042
     Dates: start: 20231020, end: 20240104
  3. CYCLOPHOSPHAMIDE [Suspect]
     Active Substance: CYCLOPHOSPHAMIDE
     Indication: Breast cancer
     Dosage: UNK (UNSPECIFIED)
     Route: 042
     Dates: start: 20240104
  4. CYCLOPHOSPHAMIDE [Suspect]
     Active Substance: CYCLOPHOSPHAMIDE
     Dosage: UNK (UNSPECIFIED)
     Route: 042
     Dates: start: 20240118
  5. EPIRUBICIN HYDROCHLORIDE [Suspect]
     Active Substance: EPIRUBICIN HYDROCHLORIDE
     Indication: Breast cancer
     Dosage: UNK (UNSPECIFIED)
     Route: 042
     Dates: start: 20240104
  6. EPIRUBICIN HYDROCHLORIDE [Suspect]
     Active Substance: EPIRUBICIN HYDROCHLORIDE
     Dosage: UNK (UNSPECIFIED)
     Route: 042
     Dates: start: 20240118
  7. KEYTRUDA [Suspect]
     Active Substance: PEMBROLIZUMAB
     Indication: Breast cancer
     Dosage: 1 DOSAGE FORM 3WEEK
     Route: 042
     Dates: start: 20231020, end: 20240604

REACTIONS (2)
  - Adrenal insufficiency [Recovered/Resolved]
  - Thyroiditis [Recovered/Resolved]

NARRATIVE: CASE EVENT DATE: 20240119
